FAERS Safety Report 5835011-2 (Version None)
Quarter: 2008Q3

REPORT INFORMATION
  Report Type: 
  Country: None (occurrence: None)
  Receive Date: 20080806
  Receipt Date: 20080728
  Transmission Date: 20090109
  Serious: Yes (Other)
  Sender: FDA-Public Use
  Company Number: US-BAYER-200818300NA

PATIENT
  Age: 61 Year
  Sex: Male
  Weight: 68 kg

DRUGS (8)
  1. CAMPATH [Suspect]
     Indication: B-CELL SMALL LYMPHOCYTIC LYMPHOMA STAGE IV
     Dosage: AS USED: 10 MG
     Route: 058
  2. CAMPATH [Suspect]
     Dosage: TOTAL DAILY DOSE: 30 MG
     Route: 058
     Dates: start: 20080326, end: 20080423
  3. CAMPATH [Suspect]
     Dosage: TOTAL DAILY DOSE: 30 MG
     Route: 058
     Dates: end: 20080323
  4. CAMPATH [Suspect]
     Dosage: AS USED: 3 MG
     Route: 058
     Dates: start: 20080225
  5. NEUPOGEN [Concomitant]
     Indication: PROPHYLAXIS
     Dates: start: 20080329, end: 20080329
  6. NEUPOGEN [Concomitant]
     Dates: start: 20080408, end: 20080408
  7. AMOXICILLIN [Concomitant]
  8. DAPSONE [Concomitant]

REACTIONS (8)
  - COUGH [None]
  - CYTOMEGALOVIRUS TEST POSITIVE [None]
  - DIARRHOEA [None]
  - NEUTROPENIA [None]
  - PANCYTOPENIA [None]
  - RHINORRHOEA [None]
  - SINUSITIS [None]
  - UPPER RESPIRATORY TRACT INFECTION [None]
